FAERS Safety Report 12947659 (Version 1)
Quarter: 2016Q4

REPORT INFORMATION
  Report Type: Spontaneous
  Country: US (occurrence: US)
  Receive Date: 20161116
  Receipt Date: 20161116
  Transmission Date: 20170207
  Serious: Yes (Hospitalization, Other)
  Sender: FDA-Public Use
  Company Number: US-SMITH AND NEPHEW, INC-2016SMT00983

PATIENT
  Age: 74 Year
  Sex: Male
  Weight: 80.5 kg

DRUGS (6)
  1. ASPIRIN. [Concomitant]
     Active Substance: ASPIRIN
  2. REGRANEX [Suspect]
     Active Substance: BECAPLERMIN
     Indication: WOUND
     Dosage: UNK UNK, 1X/DAY
     Route: 061
     Dates: start: 201610, end: 20161023
  3. ATORVASTATIN [Concomitant]
     Active Substance: ATORVASTATIN
  4. SERTRALINE [Concomitant]
     Active Substance: SERTRALINE HYDROCHLORIDE
     Indication: DEPRESSION
  5. METFORMIN [Concomitant]
     Active Substance: METFORMIN HYDROCHLORIDE
  6. GABAPENTIN. [Concomitant]
     Active Substance: GABAPENTIN

REACTIONS (8)
  - Wound complication [Recovering/Resolving]
  - Stress [Unknown]
  - Hypertension [Recovering/Resolving]
  - Gangrene [Recovering/Resolving]
  - Osteomyelitis [Unknown]
  - Drug ineffective [Not Recovered/Not Resolved]
  - Toe amputation [Recovered/Resolved with Sequelae]
  - Peripheral arterial occlusive disease [Recovering/Resolving]

NARRATIVE: CASE EVENT DATE: 201610
